FAERS Safety Report 6498693-0 (Version None)
Quarter: 2009Q4

REPORT INFORMATION
  Report Type: 
  Country: None (occurrence: None)
  Receive Date: 20091127
  Receipt Date: 20090921
  Transmission Date: 20100525
  Serious: Yes (Hospitalization)
  Sender: FDA-Public Use
  Company Number: 291916

PATIENT
  Age: 90 Year
  Sex: Male

DRUGS (1)
  1. NOVOLOG MIX 70/30 [Suspect]
     Indication: INSULIN-REQUIRING TYPE 2 DIABETES MELLITUS
     Dosage: SLIDING SCALE, SUBCUTANEOUS
     Route: 058

REACTIONS (6)
  - BLOOD GLUCOSE INCREASED [None]
  - DELUSION [None]
  - DEVICE FAILURE [None]
  - DIARRHOEA [None]
  - FAECES HARD [None]
  - MALAISE [None]
